FAERS Safety Report 5179877-0 (Version None)
Quarter: 2006Q4

REPORT INFORMATION
  Report Type: 
  Country: None (occurrence: None)
  Receive Date: 20061212
  Receipt Date: 20061129
  Transmission Date: 20070319
  Serious: Yes (Life-Threatening)
  Sender: FDA-Public Use
  Company Number: 2006148110

PATIENT
  Age: 24 Month
  Sex: Female
  Weight: 7.5 kg

DRUGS (4)
  1. VFEND [Suspect]
     Indication: PROPHYLAXIS
     Dosage: 200 MG (100 MG, 2 IN 1 D) ORAL
     Route: 048
  2. CYCLOSPORINE [Concomitant]
  3. BUSULFEX [Concomitant]
  4. CYTOXAN (CYCLOPHOSPHAMINE) [Concomitant]

REACTIONS (1)
  - VENOOCCLUSIVE LIVER DISEASE [None]
